FAERS Safety Report 21952238 (Version 1)
Quarter: 2023Q1

REPORT INFORMATION
  Report Type: Report from Study
  Country: US (occurrence: US)
  Receive Date: 20230203
  Receipt Date: 20230203
  Transmission Date: 20230418
  Serious: No
  Sender: FDA-Public Use
  Company Number: US-EXELIXIS-CABO-22049930

PATIENT
  Sex: Female

DRUGS (1)
  1. CABOMETYX [Suspect]
     Active Substance: CABOZANTINIB S-MALATE
     Indication: Renal cell carcinoma
     Dosage: 40 MG (ON DAYS 1 AND 2) AND 20 MG (ON DAY 3) OF 3 DAY CYCLE, QD
     Route: 048
     Dates: start: 202101

REACTIONS (1)
  - Product dose omission issue [Unknown]
